FAERS Safety Report 8966945 (Version 1)
Quarter: 2012Q4

REPORT INFORMATION
  Report Type: 
  Country: US (occurrence: US)
  Receive Date: 20121217
  Receipt Date: 20121217
  Transmission Date: 20130627
  Serious: Yes (Other)
  Sender: FDA-Public Use
  Company Number: US-ASTRAZENECA-2012SE54604

PATIENT
  Age: 81 Year
  Sex: Male
  Weight: 65.3 kg

DRUGS (5)
  1. ARIMIDEX [Suspect]
     Indication: GYNAECOMASTIA
     Route: 048
  2. ARIMIDEX [Suspect]
     Indication: GYNAECOMASTIA
     Route: 048
  3. PLAVIX [Concomitant]
  4. CALCIUM CHANNEL BLOCKER [Concomitant]
  5. HIGH BLOOD PRESSURE MEDICATION [Concomitant]
     Indication: HYPERTENSION

REACTIONS (7)
  - Joint injury [Unknown]
  - Rotator cuff syndrome [Unknown]
  - Gait disturbance [Unknown]
  - Weight decreased [Unknown]
  - Hypertension [Unknown]
  - Off label use [Unknown]
  - Intentional drug misuse [Unknown]
